FAERS Safety Report 23040300 (Version 1)
Quarter: 2023Q4

REPORT INFORMATION
  Report Type: Spontaneous
  Country: IN (occurrence: IN)
  Receive Date: 20231006
  Receipt Date: 20231006
  Transmission Date: 20240109
  Serious: Yes (Hospitalization)
  Sender: FDA-Public Use
  Company Number: IN-PFIZER INC-2020337708

PATIENT
  Age: 55 Year
  Sex: Male

DRUGS (2)
  1. SUTENT [Suspect]
     Active Substance: SUNITINIB MALATE
     Indication: Metastatic renal cell carcinoma
     Dosage: 37.5 MG, CYCLIC (ONCE A DAY, 2 WEEKS AND 1 WEEK OFF)
     Route: 048
     Dates: start: 20200826
  2. SUTENT [Suspect]
     Active Substance: SUNITINIB MALATE
     Dosage: 50 MG, CYCLIC (2 WEEK ON + 1 WEEK OFF)
     Dates: start: 20210327

REACTIONS (3)
  - Dehydration [Unknown]
  - SARS-CoV-2 test positive [Unknown]
  - Blood creatinine increased [Unknown]

NARRATIVE: CASE EVENT DATE: 20210401
